FAERS Safety Report 24835394 (Version 2)
Quarter: 2025Q1

REPORT INFORMATION
  Report Type: Spontaneous
  Country: ES (occurrence: ES)
  Receive Date: 20250113
  Receipt Date: 20250217
  Transmission Date: 20250409
  Serious: Yes (Death)
  Sender: NOVARTIS
  Company Number: ES-002147023-NVSC2025ES004309

PATIENT

DRUGS (1)
  1. ELTROMBOPAG [Suspect]
     Active Substance: ELTROMBOPAG
     Indication: Immune thrombocytopenia
     Route: 065

REACTIONS (3)
  - Cerebral haemorrhage [Fatal]
  - Thrombocytopenia [Fatal]
  - Off label use [Unknown]
